FAERS Safety Report 6528961-5 (Version None)
Quarter: 2009Q4

REPORT INFORMATION
  Report Type: 
  Country: None (occurrence: None)
  Receive Date: 20091224
  Receipt Date: 20091217
  Transmission Date: 20100525
  Serious: Yes (Hospitalization)
  Sender: FDA-Public Use
  Company Number: A-CH2009-32328

PATIENT
  Age: 25 Year
  Sex: Male

DRUGS (1)
  1. BOSENTAN TABLET 62.5 MG EU(BOSENTAN TABLET 62.5 MG EU)(BOSENTAN) TABLE [Suspect]
     Indication: DRUG USE FOR UNKNOWN INDICATION
     Dosage: 62.5 MG, BID, ORAL
     Route: 048
     Dates: start: 20091203, end: 20091217

REACTIONS (5)
  - EXERCISE TOLERANCE DECREASED [None]
  - INFLUENZA LIKE ILLNESS [None]
  - MALAISE [None]
  - MOUTH HAEMORRHAGE [None]
  - PALPITATIONS [None]
